FAERS Safety Report 8858755 (Version 1)
Quarter: 2012Q4

REPORT INFORMATION
  Report Type: Spontaneous
  Country: US (occurrence: None)
  Receive Date: 20121023
  Receipt Date: 20121023
  Transmission Date: 20130627
  Serious: Yes (Hospitalization)
  Sender: FDA-Public Use
  Company Number: None

PATIENT
  Age: 70 Year
  Sex: Female

DRUGS (10)
  1. RIVAROXABAN [Suspect]
     Indication: DVT PROPHYLAXIS
     Dosage: 10mg daily PO
     Route: 048
     Dates: start: 20120614, end: 20120614
  2. RIVAROXABAN [Suspect]
     Indication: TOTAL KNEE REPLACEMENT
     Dosage: 10mg daily PO
     Route: 048
     Dates: start: 20120614, end: 20120614
  3. OXYCODONE/ACETAMINOPHEN [Concomitant]
  4. CAFAZOLIN [Concomitant]
  5. EYE DROPS (BROMONIDINE, TIMOLOL, AND PREDNISOLONE OPTHALMICS) [Concomitant]
  6. DOCUSATE SODIUM [Concomitant]
  7. HYDROCHLOROTHIAZIDE [Concomitant]
  8. LISINOPRIL [Concomitant]
  9. NAPROXEN [Concomitant]
  10. FISH OIL [Concomitant]

REACTIONS (2)
  - Hypoxia [None]
  - Pulmonary embolism [None]
